FAERS Safety Report 20927561 (Version 1)
Quarter: 2022Q2

REPORT INFORMATION
  Report Type: Report from Study
  Country: US (occurrence: US)
  Receive Date: 20220607
  Receipt Date: 20220607
  Transmission Date: 20220720
  Serious: Yes (Death, Life-Threatening, Hospitalization, Other)
  Sender: FDA-Public Use
  Company Number: US-GILEAD-2022-0583773

PATIENT
  Age: 34 Year
  Sex: Male
  Weight: 116.3 kg

DRUGS (31)
  1. REMDESIVIR [Suspect]
     Active Substance: REMDESIVIR
     Indication: COVID-19
     Dosage: 100 MG, QD
     Route: 048
     Dates: start: 20210915, end: 20210918
  2. REMDESIVIR [Suspect]
     Active Substance: REMDESIVIR
     Dosage: 200 MG, ONCE
     Route: 042
     Dates: start: 20210914, end: 20210914
  3. CYPROHEPTADINE [Suspect]
     Active Substance: CYPROHEPTADINE
     Indication: COVID-19
     Dosage: 8 MG, TID
     Route: 050
     Dates: start: 20210914, end: 20210923
  4. BUDESONIDE [Concomitant]
     Active Substance: BUDESONIDE
     Dosage: UNK
     Dates: start: 20210915, end: 20211123
  5. OXYGEN [Concomitant]
     Active Substance: OXYGEN
     Dosage: UNK
     Dates: start: 20210913
  6. ACETAMINOPHEN [Concomitant]
     Active Substance: ACETAMINOPHEN
     Dosage: UNK
     Dates: start: 20210913, end: 20210923
  7. ALBUTEROL [Concomitant]
     Active Substance: ALBUTEROL
     Dosage: UNK
     Dates: start: 20210913, end: 20210923
  8. ARFORMOTEROL [Concomitant]
     Active Substance: ARFORMOTEROL
     Dosage: UNK
     Dates: start: 20210915, end: 20210923
  9. BENZONATATE [Concomitant]
     Active Substance: BENZONATATE
     Dosage: UNK
     Dates: start: 20210913, end: 20210917
  10. CEFAZOLIN [Concomitant]
     Active Substance: CEFAZOLIN
     Dosage: UNK
     Dates: start: 20211104, end: 20211108
  11. CEFEPIME [Concomitant]
     Active Substance: CEFEPIME HYDROCHLORIDE
     Dosage: UNK
     Dates: start: 20210917, end: 20210923
  12. CEFEPIME [Concomitant]
     Active Substance: CEFEPIME HYDROCHLORIDE
     Dosage: UNK
     Dates: start: 20211018, end: 20211117
  13. CISATRACURIUM [Concomitant]
     Active Substance: CISATRACURIUM
     Dosage: UNK
     Dates: start: 20210923, end: 20211016
  14. DEXAMETHASONE [Concomitant]
     Active Substance: DEXAMETHASONE
     Dosage: UNK
     Dates: start: 20210913, end: 20210918
  15. DIPHENHYDRAMINE [Concomitant]
     Active Substance: DIPHENHYDRAMINE
     Dosage: UNK
     Dates: start: 20210920
  16. DOXYCYCLINE [Concomitant]
     Active Substance: DOXYCYCLINE
     Dosage: UNK
     Dates: start: 20210914, end: 20211123
  17. ENOXAPARIN [Concomitant]
     Active Substance: ENOXAPARIN
     Dosage: UNK
     Dates: start: 20210914, end: 20211123
  18. LORAZEPAM [Concomitant]
     Active Substance: LORAZEPAM
     Dosage: UNK
     Dates: start: 20210915, end: 20210923
  19. METHYLPREDNISOLONE [Concomitant]
     Active Substance: METHYLPREDNISOLONE
     Dosage: UNK
     Dates: start: 20210918, end: 20211108
  20. NOREPINEPHRINE [Concomitant]
     Active Substance: NOREPINEPHRINE
     Dosage: UNK
     Dates: start: 20210923, end: 20210929
  21. NOREPINEPHRINE [Concomitant]
     Active Substance: NOREPINEPHRINE
     Dosage: UNK
     Dates: start: 20211018, end: 20211123
  22. NOREPINEPHRINE [Concomitant]
     Active Substance: NOREPINEPHRINE
     Dosage: UNK
     Dates: start: 20211030, end: 20211031
  23. VANCOMYCIN [Concomitant]
     Active Substance: VANCOMYCIN
     Dosage: UNK
     Dates: start: 20210930, end: 20211120
  24. VANCOMYCIN [Concomitant]
     Active Substance: VANCOMYCIN
     Dosage: UNK
     Dates: start: 20211121, end: 20211123
  25. VECURONIUM [Concomitant]
     Active Substance: VECURONIUM BROMIDE
     Dosage: UNK
     Dates: start: 20211020, end: 20211030
  26. VECURONIUM [Concomitant]
     Active Substance: VECURONIUM BROMIDE
     Dosage: UNK
     Dates: start: 20211110, end: 20211122
  27. INTERLEUKIN NOS [Concomitant]
     Active Substance: INTERLEUKIN NOS
  28. ASCORBIC ACID [Concomitant]
     Active Substance: ASCORBIC ACID
     Dosage: UNK
     Dates: start: 20210915, end: 20210923
  29. CHOLECALCIFEROL [Concomitant]
     Active Substance: CHOLECALCIFEROL
     Dosage: UNK
     Dates: start: 20210923, end: 20211123
  30. ZINC SULFATE [Concomitant]
     Active Substance: ZINC SULFATE
     Dosage: UNK
     Dates: start: 20210914, end: 20211123
  31. TOCILIZUMAB [Concomitant]
     Active Substance: TOCILIZUMAB
     Dosage: UNK
     Dates: start: 20210914, end: 20210914

REACTIONS (4)
  - Respiratory failure [Fatal]
  - Pneumothorax [Not Recovered/Not Resolved]
  - Cardiac arrest [Fatal]
  - Cardiac arrest [Fatal]

NARRATIVE: CASE EVENT DATE: 20211028
